FAERS Safety Report 12882475 (Version 3)
Quarter: 2023Q2

REPORT INFORMATION
  Report Type: Spontaneous
  Country: RU (occurrence: RU)
  Receive Date: 20161025
  Receipt Date: 20230630
  Transmission Date: 20230721
  Serious: Yes (Other)
  Sender: FDA-Public Use
  Company Number: RU-JNJFOC-20160930024

PATIENT

DRUGS (4)
  1. REMICADE [Suspect]
     Active Substance: INFLIXIMAB
     Indication: Colitis ulcerative
     Route: 041
     Dates: start: 2008, end: 2014
  2. MESALAMINE [Concomitant]
     Active Substance: MESALAMINE
     Route: 065
  3. AZATHIOPRINE [Concomitant]
     Active Substance: AZATHIOPRINE
     Dosage: 2.0-1.5 MG/KG
     Route: 065
  4. MERCAPTOPURINE [Concomitant]
     Active Substance: MERCAPTOPURINE
     Dosage: 2.0-1.5 MG/KG
     Route: 065

REACTIONS (10)
  - Intestinal haemorrhage [Unknown]
  - Angioedema [Unknown]
  - Infection [Unknown]
  - Infusion related reaction [Unknown]
  - Tuberculosis [Unknown]
  - Drug ineffective [Unknown]
  - Hypersensitivity [Unknown]
  - Drug intolerance [Unknown]
  - Colitis ulcerative [Unknown]
  - Drug specific antibody present [Unknown]
